FAERS Safety Report 6222669-1 (Version None)
Quarter: 2009Q2

REPORT INFORMATION
  Report Type: 
  Country: None (occurrence: None)
  Receive Date: 20090611
  Receipt Date: 20090528
  Transmission Date: 20091009
  Serious: Yes (Life-Threatening, Hospitalization, Other)
  Sender: FDA-Public Use
  Company Number: CH-ELI_LILLY_AND_COMPANY-CH200906000027

PATIENT
  Age: 56 Year
  Sex: Male

DRUGS (12)
  1. ZYPREXA [Suspect]
     Dosage: 5 MG, DAILY (1/D)
     Route: 048
  2. ANXIOLIT [Concomitant]
     Dosage: 7.5 MG, 4/D
     Route: 048
     Dates: start: 20090310
  3. HALDOL [Concomitant]
     Dosage: 1 MG, 2/D
     Route: 048
  4. LIQUAEMIN INJ [Concomitant]
     Dosage: 3500 IU, DAILY (1/D)
     Route: 042
  5. TIENAM [Concomitant]
     Dosage: 250 MG, 2/D
     Route: 042
  6. KLACID [Concomitant]
     Dosage: 250 MG, 2/D
     Route: 048
  7. NORVASC [Concomitant]
     Dosage: 10 MG, DAILY (1/D)
     Route: 048
  8. TRANDATE [Concomitant]
     Dosage: 100 MG, 3/D
     Route: 048
  9. BECOZYM [Concomitant]
     Dosage: 1 D/F, DAILY (1/D)
     Route: 048
  10. BENERVA [Concomitant]
     Dosage: 300 MG, DAILY (1/D)
     Route: 048
  11. NEXIUM [Concomitant]
     Dosage: 40 MG, 2/D
     Route: 048
  12. DOSPIR [Concomitant]
     Dosage: 2.5 ML, AS NEEDED
     Route: 055

REACTIONS (3)
  - DEPRESSED LEVEL OF CONSCIOUSNESS [None]
  - RESPIRATORY FAILURE [None]
  - SEPTIC SHOCK [None]
